FAERS Safety Report 18100516 (Version 1)
Quarter: 2020Q3

REPORT INFORMATION
  Report Type: Spontaneous
  Country: US (occurrence: US)
  Receive Date: 20200731
  Receipt Date: 20200731
  Transmission Date: 20201103
  Serious: Yes (Other)
  Sender: FDA-Public Use
  Company Number: US-ALLERGAN-2027563US

PATIENT
  Sex: Female

DRUGS (1)
  1. BOTOX [Suspect]
     Active Substance: ONABOTULINUMTOXINA
     Indication: MIGRAINE
     Dosage: UNK UNK, SINGLE

REACTIONS (6)
  - Anxiety [Unknown]
  - Stress [Unknown]
  - Autoimmune disorder [Unknown]
  - Dysphagia [Recovered/Resolved]
  - Toxicity to various agents [Unknown]
  - Sphincter of Oddi dysfunction [Unknown]
